FAERS Safety Report 9068937 (Version 1)
Quarter: 2013Q1

REPORT INFORMATION
  Report Type: Spontaneous
  Country: US (occurrence: US)
  Receive Date: 20130215
  Receipt Date: 20130215
  Transmission Date: 20140127
  Serious: Yes (Death)
  Sender: FDA-Public Use
  Company Number: US-BANPHARM-20130736

PATIENT
  Age: 56 Year
  Sex: Female

DRUGS (11)
  1. NAPROXEN [Suspect]
  2. UNSPECIFIED INGREDIENT [Suspect]
  3. CITALOPRAM [Suspect]
  4. LISINOPRIL [Suspect]
  5. CLONAZEPAM [Suspect]
  6. GABAPENTIN [Suspect]
  7. CYCLOBENZAPRINE [Suspect]
  8. ACETAMINOPHEN/BUTALBITAL/CAFFEINE [Suspect]
  9. ZOLPIDEM [Suspect]
  10. SUMATRIPTAN [Suspect]
  11. UNKNOWN DRUG [Suspect]

REACTIONS (1)
  - Completed suicide [Fatal]
